FAERS Safety Report 21498729 (Version 1)
Quarter: 2022Q4

REPORT INFORMATION
  Report Type: Spontaneous
  Country: US (occurrence: None)
  Receive Date: 20221022
  Receipt Date: 20221022
  Transmission Date: 20230112
  Serious: Yes (Hospitalization)
  Sender: FDA-Public Use
  Company Number: None

PATIENT
  Sex: Female
  Weight: 83.5 kg

DRUGS (2)
  1. PEMBROLIZUMAB [Suspect]
     Active Substance: PEMBROLIZUMAB
     Dates: end: 20220928
  2. ALIMTA [Suspect]
     Active Substance: PEMETREXED DISODIUM
     Dates: end: 20220928

REACTIONS (10)
  - Fall [None]
  - Oxygen saturation decreased [None]
  - Dyspnoea [None]
  - Hypoxia [None]
  - Lung opacity [None]
  - Pneumonitis [None]
  - Pneumonia [None]
  - Disease progression [None]
  - Respiratory distress [None]
  - Therapy interrupted [None]

NARRATIVE: CASE EVENT DATE: 20221010
